FAERS Safety Report 4614125-9 (Version None)
Quarter: 2005Q1

REPORT INFORMATION
  Report Type: 
  Country: None (occurrence: None)
  Receive Date: 20050315
  Receipt Date: 20050228
  Transmission Date: 20050727
  Serious: Yes (Hospitalization)
  Sender: FDA-Public Use
  Company Number: WAES 0502USA03533

PATIENT
  Age: 69 Year
  Sex: Male
  Weight: 74.8435 kg

DRUGS (13)
  1. PRINIVIL [Suspect]
     Dosage: 2.5 MG/DAILY/PO
     Route: 048
  2. ANGIOMAX [Suspect]
     Dosage: 75 MG/1X/IV
     Route: 042
     Dates: start: 20040902, end: 20040902
  3. ANGIOMAX [Suspect]
     Dosage: 190 MG/QH/IV
     Route: 042
     Dates: start: 20040902, end: 20040902
  4. COREG [Suspect]
     Dosage: 2.125 MG/DAILY/PO
     Route: 048
  5. METOPROLOL [Suspect]
     Dosage: 25 MG/BID
  6. MIRAPEX [Concomitant]
  7. SINEMET [Concomitant]
  8. VICODIN [Concomitant]
  9. AMANTADINE HCL [Concomitant]
  10. DOCUSATE SODIUM [Concomitant]
  11. LOVASTATIN [Concomitant]
  12. SELEGILINE HCL [Concomitant]
  13. WARFARIN [Concomitant]

REACTIONS (11)
  - AORTIC VALVE INCOMPETENCE [None]
  - CHEST DISCOMFORT [None]
  - DILATATION ATRIAL [None]
  - DIZZINESS [None]
  - EJECTION FRACTION DECREASED [None]
  - ELECTROCARDIOGRAM T WAVE INVERSION [None]
  - TRICUSPID VALVE INCOMPETENCE [None]
  - VENTRICULAR DYSFUNCTION [None]
  - VENTRICULAR HYPERTROPHY [None]
  - VENTRICULAR TACHYCARDIA [None]
  - VERTIGO [None]
